FAERS Safety Report 9891440 (Version 3)
Quarter: 2015Q1

REPORT INFORMATION
  Report Type: Spontaneous
  Country: US (occurrence: US)
  Receive Date: 20140212
  Receipt Date: 20150113
  Transmission Date: 20150721
  Serious: No
  Sender: FDA-Public Use
  Company Number: US-PFIZER INC-2014038400

PATIENT
  Age: 62 Year
  Sex: Female

DRUGS (9)
  1. AVAPRO [Suspect]
     Active Substance: IRBESARTAN
     Dosage: UNK
  2. HYDROCODONE [Suspect]
     Active Substance: HYDROCODONE
     Dosage: UNK
  3. ATARAX [Suspect]
     Active Substance: HYDROXYZINE\HYDROXYZINE HYDROCHLORIDE
     Dosage: UNK
  4. TRAMADOL [Suspect]
     Active Substance: TRAMADOL
     Dosage: UNK
  5. ZESTRIL [Suspect]
     Active Substance: LISINOPRIL
     Dosage: UNK
  6. APAP [Suspect]
     Active Substance: ACETAMINOPHEN
     Dosage: UNK
  7. NEURONTIN [Suspect]
     Active Substance: GABAPENTIN
     Dosage: UNK
  8. FORMALDEHYDE SOLUTION [Suspect]
     Active Substance: FORMALDEHYDE
     Dosage: UNK
  9. CODEINE [Suspect]
     Active Substance: CODEINE
     Dosage: UNK

REACTIONS (1)
  - Drug hypersensitivity [Unknown]
